FAERS Safety Report 7002254-4 (Version None)
Quarter: 2010Q3

REPORT INFORMATION
  Report Type: 
  Country: None (occurrence: None)
  Receive Date: 20100920
  Receipt Date: 20100701
  Transmission Date: 20110219
  Serious: No
  Sender: FDA-Public Use
  Company Number: US-ASTRAZENECA-2010SE30780

PATIENT
  Age: 57 Year
  Sex: Female
  Weight: 81.6 kg

DRUGS (2)
  1. SEROQUEL XR [Suspect]
     Indication: BIPOLAR DISORDER
     Dosage: DAILY
     Route: 048
     Dates: start: 20100601
  2. SEROQUEL XR [Suspect]
     Route: 048

REACTIONS (4)
  - BIPOLAR DISORDER [None]
  - CRYING [None]
  - DRY EYE [None]
  - THINKING ABNORMAL [None]
